FAERS Safety Report 21914663 (Version 1)
Quarter: 2023Q1

REPORT INFORMATION
  Report Type: Spontaneous
  Country: JP (occurrence: JP)
  Receive Date: 20230126
  Receipt Date: 20230126
  Transmission Date: 20230417
  Serious: Yes (Other)
  Sender: FDA-Public Use
  Company Number: JP-009507513-2212JPN008642

PATIENT
  Age: 86 Year
  Sex: Female

DRUGS (2)
  1. FIDAXOMICIN [Suspect]
     Active Substance: FIDAXOMICIN
     Indication: Enteritis infectious
     Dosage: 200 MILLIGRAM
     Route: 048
     Dates: start: 20221106, end: 20221115
  2. FIDAXOMICIN [Suspect]
     Active Substance: FIDAXOMICIN
     Dosage: 200 MG, TWICE DAILY, COULD NOT BE TAKEN FOR ABOUT 2 DAYSUNK
     Route: 048
     Dates: start: 20221214, end: 20221225

REACTIONS (1)
  - Infection reactivation [Unknown]

NARRATIVE: CASE EVENT DATE: 20221214
